FAERS Safety Report 22109137 (Version 1)
Quarter: 2023Q1

REPORT INFORMATION
  Report Type: Spontaneous
  Country: US (occurrence: US)
  Receive Date: 20230317
  Receipt Date: 20230317
  Transmission Date: 20230418
  Serious: Yes (Other)
  Sender: FDA-Public Use
  Company Number: US-BRISTOL-MYERS SQUIBB COMPANY-2023-038830

PATIENT
  Age: 77 Year
  Sex: Female
  Weight: 61.68 kg

DRUGS (5)
  1. POMALYST [Suspect]
     Active Substance: POMALIDOMIDE
     Indication: Plasma cell myeloma
     Route: 048
  2. GABAPENTIN [Concomitant]
     Active Substance: GABAPENTIN
     Indication: Product used for unknown indication
     Dosage: TAKE 3 CAPSULES BY MOUTH TWO TIMES A DAY AND 4 CAPSULES AT BEDTIME
     Route: 048
  3. DEXAMETHASONE [Concomitant]
     Active Substance: DEXAMETHASONE
     Indication: Product used for unknown indication
     Dosage: TAKE 5(20MG) TABS BY MOUTH AS A ONE DOSE ONCE A WEEK AS DIRECTED
     Route: 048
  4. METHADONE [Concomitant]
     Active Substance: METHADONE HYDROCHLORIDE
     Indication: Product used for unknown indication
     Dosage: 1 TAB PO Q12H
     Route: 048
  5. ACYCLOVIR [Concomitant]
     Active Substance: ACYCLOVIR
     Indication: Product used for unknown indication
     Dosage: 1 TAB PO Q12H
     Route: 048
     Dates: start: 20130610

REACTIONS (2)
  - Dermatitis [Recovering/Resolving]
  - Mucosal inflammation [Recovering/Resolving]
